FAERS Safety Report 4426494-3 (Version None)
Quarter: 2004Q3

REPORT INFORMATION
  Report Type: 
  Country: None (occurrence: None)
  Receive Date: 20040816
  Receipt Date: 20040803
  Transmission Date: 20050211
  Serious: Yes (Other)
  Sender: FDA-Public Use
  Company Number: US-JNJFOC-20040405660

PATIENT
  Sex: Male
  Weight: 74.84 kg

DRUGS (14)
  1. REMICADE [Suspect]
     Route: 042
  2. REMICADE [Suspect]
     Route: 042
  3. REMICADE [Suspect]
     Route: 042
  4. REMICADE [Suspect]
     Route: 042
  5. REMICADE [Suspect]
     Indication: CROHN'S DISEASE
     Route: 042
  6. IMURAN [Concomitant]
  7. PREDNISONE [Concomitant]
  8. PROTONIX [Concomitant]
  9. CIPRO [Concomitant]
  10. MULTIVITAMIN WITH IRON [Concomitant]
  11. CALCIUM [Concomitant]
  12. VITAMIN B-12 [Concomitant]
  13. CARDIZEM [Concomitant]
  14. NULEV [Concomitant]

REACTIONS (10)
  - ABDOMINAL DISTENSION [None]
  - ABDOMINAL PAIN [None]
  - CHEST DISCOMFORT [None]
  - CHEST PAIN [None]
  - CHOLECYSTECTOMY [None]
  - DRUG SPECIFIC ANTIBODY PRESENT [None]
  - FEELING HOT [None]
  - HEART RATE INCREASED [None]
  - INFUSION RELATED REACTION [None]
  - INSOMNIA [None]
